FAERS Safety Report 7859753-2 (Version None)
Quarter: 2011Q4

REPORT INFORMATION
  Report Type: 
  Country: None (occurrence: None)
  Receive Date: 20111027
  Receipt Date: 20111024
  Transmission Date: 20120403
  Serious: Yes (Hospitalization)
  Sender: FDA-Public Use
  Company Number: AR-SANOFI-AVENTIS-2011SA063534

PATIENT
  Age: 75 Year
  Sex: Male

DRUGS (10)
  1. KETOCONAZOLE [Suspect]
     Indication: INFECTED SKIN ULCER
     Route: 065
  2. METFORMIN HCL [Suspect]
     Indication: TYPE 2 DIABETES MELLITUS
     Route: 065
  3. ACE INHIBITOR NOS [Concomitant]
  4. ASPIRIN [Concomitant]
  5. INSULIN [Concomitant]
     Dates: start: 20110816
  6. RIFAMPIN [Suspect]
     Indication: INFECTED SKIN ULCER
     Route: 065
  7. HMG COA REDUCTASE INHIBITORS [Concomitant]
  8. BLINDED THERAPY [Suspect]
  9. BLINDED THERAPY [Suspect]
     Indication: TYPE 2 DIABETES MELLITUS
     Route: 065
     Dates: start: 20100923, end: 20110907
  10. DIURETICS [Concomitant]

REACTIONS (3)
  - LIVER FUNCTION TEST ABNORMAL [None]
  - PERIPHERAL ISCHAEMIA [None]
  - JAUNDICE [None]
